FAERS Safety Report 4759993-5 (Version None)
Quarter: 2005Q3

REPORT INFORMATION
  Report Type: 
  Country: None (occurrence: None)
  Receive Date: 20050902
  Receipt Date: 20050825
  Transmission Date: 20060218
  Serious: Yes (Other)
  Sender: FDA-Public Use
  Company Number: PHBS2005BE12559

PATIENT
  Sex: Male

DRUGS (4)
  1. AREDIA [Suspect]
     Indication: MULTIPLE MYELOMA
     Route: 065
     Dates: start: 19991201, end: 20021001
  2. AREDIA [Suspect]
     Dosage: UNK, UNK
     Route: 065
     Dates: start: 20040101
  3. ZOMETA [Suspect]
     Indication: MULTIPLE MYELOMA
     Route: 065
     Dates: start: 20021101, end: 20040101
  4. VINCRISTINE + ADRIAMYCIN + DEXAMETHASONE [Concomitant]
     Indication: MULTIPLE MYELOMA
     Dates: start: 19990101

REACTIONS (4)
  - CRYOTHERAPY [None]
  - PURULENT DISCHARGE [None]
  - TOOTHACHE [None]
  - WOUND DEBRIDEMENT [None]
